FAERS Safety Report 14801117 (Version 1)
Quarter: 2018Q2

REPORT INFORMATION
  Report Type: Report from Study
  Country: US (occurrence: US)
  Receive Date: 20180424
  Receipt Date: 20180424
  Transmission Date: 20180711
  Serious: No
  Sender: FDA-Public Use
  Company Number: US-TAKEDA-2018TUS010514

PATIENT
  Sex: Male

DRUGS (1)
  1. PONATINIB [Suspect]
     Active Substance: PONATINIB
     Indication: CHRONIC MYELOID LEUKAEMIA
     Dosage: 15 MG, QOD
     Route: 048

REACTIONS (11)
  - Blood glucose abnormal [Unknown]
  - Neutrophil count abnormal [Unknown]
  - Off label use [Unknown]
  - Blood thyroid stimulating hormone abnormal [Unknown]
  - Red blood cell count abnormal [Unknown]
  - Platelet count abnormal [Unknown]
  - Chest pain [Unknown]
  - Headache [Unknown]
  - Pain [Unknown]
  - White blood cell count abnormal [Unknown]
  - Dizziness [Unknown]
